FAERS Safety Report 16790993 (Version 1)
Quarter: 2019Q3

REPORT INFORMATION
  Report Type: Spontaneous
  Country: GB (occurrence: GB)
  Receive Date: 20190910
  Receipt Date: 20190910
  Transmission Date: 20191005
  Serious: Yes (Other)
  Sender: FDA-Public Use
  Company Number: GB-PFIZER INC-2019383709

PATIENT
  Age: 77 Year
  Sex: Female
  Weight: 79 kg

DRUGS (11)
  1. IRBESARTAN. [Concomitant]
     Active Substance: IRBESARTAN
     Dosage: 1 DF, 1X/DAY
     Dates: start: 20180731
  2. RIVAROXABAN [Concomitant]
     Active Substance: RIVAROXABAN
     Dosage: 1 DF, 1X/DAY
     Dates: start: 20190226
  3. OMEPRAZOLE. [Concomitant]
     Active Substance: OMEPRAZOLE
     Dosage: 1 DF, 1X/DAY
     Dates: start: 20180613
  4. ACIDEX [Concomitant]
     Active Substance: CALCIUM CARBONATE\SODIUM ALGINATE\SODIUM BICARBONATE
     Dosage: 40 ML, 1X/DAY (AFTER MEALS AND BEFORE BED)
     Dates: start: 20190321
  5. DOXAZOSIN MESILATE [Suspect]
     Active Substance: DOXAZOSIN MESYLATE
     Dosage: 1 MG, 1X/DAY (AT NIGHT)
     Dates: start: 20190807
  6. CINNARIZINE [Concomitant]
     Active Substance: CINNARIZINE
     Dosage: 1 DF, UNK,(1 BD)
     Dates: start: 20190730, end: 20190814
  7. SALBUTAMOL [Concomitant]
     Active Substance: ALBUTEROL
     Dosage: 2 DF, UNK
     Dates: start: 20190318
  8. PREGABALIN. [Concomitant]
     Active Substance: PREGABALIN
     Dosage: 3 DF, 1X/DAY
     Dates: start: 20161215
  9. INCRUSE ELLIPTA [Concomitant]
     Active Substance: UMECLIDINIUM BROMIDE
     Indication: CHRONIC OBSTRUCTIVE PULMONARY DISEASE
     Dosage: 1 DF, 1X/DAY
     Route: 055
     Dates: start: 20181102
  10. PROCHLORPERAZINE. [Concomitant]
     Active Substance: PROCHLORPERAZINE
     Dosage: 1 DF, UNK (1 BD)
     Dates: start: 20190726
  11. INVITA D3 [Concomitant]
     Dosage: 1 DF, MONTHLY(DRINK THE CONTENTS OF ONE AMPOULE)
     Dates: start: 20181207

REACTIONS (1)
  - Cystitis [Recovered/Resolved]

NARRATIVE: CASE EVENT DATE: 20190814
